FAERS Safety Report 4516647-8 (Version None)
Quarter: 2004Q4

REPORT INFORMATION
  Report Type: 
  Country: None (occurrence: None)
  Receive Date: 20041202
  Receipt Date: 20041122
  Transmission Date: 20050328
  Serious: Yes (Hospitalization, Disabling)
  Sender: FDA-Public Use
  Company Number: US-MERCK-0411USA03601

PATIENT
  Age: 62 Year
  Sex: Female

DRUGS (5)
  1. VIOXX [Suspect]
     Indication: FIBROMYALGIA
     Route: 048
     Dates: start: 19990101, end: 20040926
  2. VIOXX [Suspect]
     Indication: ARTHRITIS
     Route: 048
     Dates: start: 19990101, end: 20040926
  3. FLEXERIL [Concomitant]
     Route: 065
  4. PROZAC [Concomitant]
     Route: 065
  5. DEXTROSTAT [Concomitant]
     Route: 065

REACTIONS (2)
  - LOSS OF CONSCIOUSNESS [None]
  - TRANSIENT ISCHAEMIC ATTACK [None]
